FAERS Safety Report 8084224-0 (Version None)
Quarter: 2012Q1

REPORT INFORMATION
  Report Type: 
  Country: None (occurrence: None)
  Receive Date: 20120128
  Receipt Date: 20110120
  Transmission Date: 20120608
  Serious: No
  Sender: FDA-Public Use
  Company Number: US-ABBOTT-11P-163-0699623-00

PATIENT
  Sex: Female
  Weight: 60.836 kg

DRUGS (3)
  1. METHOTREXATE [Concomitant]
     Indication: RHEUMATOID ARTHRITIS
     Dates: start: 20101101, end: 20101101
  2. HUMIRA [Suspect]
     Indication: RHEUMATOID ARTHRITIS
     Dates: start: 20101101, end: 20101101
  3. PLAQUENIL [Concomitant]
     Indication: RHEUMATOID ARTHRITIS
     Dosage: UNKNOWN

REACTIONS (2)
  - COUGH [None]
  - PNEUMONIA [None]
